FAERS Safety Report 8600320-0 (Version None)
Quarter: 2012Q3

REPORT INFORMATION
  Report Type: 
  Country: None (occurrence: None)
  Receive Date: 20120817
  Receipt Date: 20120808
  Transmission Date: 20120928
  Serious: Yes (Hospitalization)
  Sender: FDA-Public Use
  Company Number: US-BRISTOL-MYERS SQUIBB COMPANY-16843872

PATIENT
  Age: 53 Year
  Sex: Female

DRUGS (2)
  1. ESTRIOL [Suspect]
     Indication: MENOPAUSAL SYMPTOMS
  2. ESTRADIOL [Suspect]
     Indication: MENOPAUSAL SYMPTOMS

REACTIONS (2)
  - PSYCHOTIC DISORDER [None]
  - MEDICATION ERROR [None]
